FAERS Safety Report 7428705-9 (Version None)
Quarter: 2011Q2

REPORT INFORMATION
  Report Type: 
  Country: None (occurrence: None)
  Receive Date: 20110415
  Receipt Date: 20110415
  Transmission Date: 20111010
  Serious: Yes (Other)
  Sender: FDA-Public Use
  Company Number: None

PATIENT
  Age: 70 Year
  Sex: Female
  Weight: 36 kg

DRUGS (1)
  1. MORPHINE [Suspect]
     Dosage: 10 MG AS NEEDED IV TIMES ONE
     Route: 042
     Dates: start: 20110215, end: 20110215

REACTIONS (1)
  - INJECTION SITE URTICARIA [None]
